FAERS Safety Report 9652049 (Version 1)
Quarter: 2013Q4

REPORT INFORMATION
  Report Type: Spontaneous
  Country: US (occurrence: None)
  Receive Date: 20131025
  Receipt Date: 20131025
  Transmission Date: 20140711
  Serious: No
  Sender: FDA-Public Use
  Company Number: None

PATIENT
  Age: 54 Year
  Sex: Male
  Weight: 88.5 kg

DRUGS (1)
  1. RISPERDONE 4MG 1 HS [Suspect]
     Indication: PSYCHOTIC DISORDER
     Route: 048
     Dates: start: 20130613, end: 20130829

REACTIONS (2)
  - Parkinsonism [None]
  - Restlessness [None]
